FAERS Safety Report 19987884 (Version 1)
Quarter: 2021Q4

REPORT INFORMATION
  Report Type: Spontaneous
  Country: IN (occurrence: IN)
  Receive Date: 20211023
  Receipt Date: 20211023
  Transmission Date: 20220303
  Serious: Yes (Life-Threatening, Other)
  Sender: FDA-Public Use
  Company Number: IN-ABBVIE-21K-078-4126662-00

PATIENT
  Age: 19 Year
  Sex: Male

DRUGS (5)
  1. DIVALPROEX SODIUM [Suspect]
     Active Substance: DIVALPROEX SODIUM
     Indication: Product used for unknown indication
     Route: 065
  2. LITHIUM [Suspect]
     Active Substance: LITHIUM
     Indication: Product used for unknown indication
     Route: 065
  3. TRIHEXYPHENIDYL HYDROCHLORIDE [Suspect]
     Active Substance: TRIHEXYPHENIDYL HYDROCHLORIDE
     Indication: Product used for unknown indication
     Route: 065
  4. QUETIAPINE FUMARATE [Suspect]
     Active Substance: QUETIAPINE FUMARATE
     Indication: Mania
     Route: 065
  5. OLANZAPINE [Suspect]
     Active Substance: OLANZAPINE
     Indication: Product used for unknown indication
     Route: 065

REACTIONS (9)
  - Electrocardiogram QT prolonged [Unknown]
  - Extrapyramidal disorder [Recovering/Resolving]
  - Bradykinesia [Unknown]
  - Muscle rigidity [Unknown]
  - Blood thyroid stimulating hormone increased [Unknown]
  - Salivary hypersecretion [Unknown]
  - Platelet count decreased [Unknown]
  - Dysarthria [Unknown]
  - Drug ineffective [Unknown]
